FAERS Safety Report 5406235-3 (Version None)
Quarter: 2007Q3

REPORT INFORMATION
  Report Type: 
  Country: None (occurrence: None)
  Receive Date: 20070802
  Receipt Date: 20070802
  Transmission Date: 20080115
  Serious: Yes (Life-Threatening, Hospitalization)
  Sender: FDA-Public Use
  Company Number: None

PATIENT
  Sex: Male
  Weight: 72.5755 kg

DRUGS (3)
  1. ZYPREXA [Suspect]
     Indication: AGITATION
     Dosage: 5 MG BID PO 5 MG BID PRN PO
     Route: 048
     Dates: start: 20070718, end: 20070719
  2. ZYPREXA [Suspect]
     Indication: DEMENTIA
     Dosage: 5 MG BID PO 5 MG BID PRN PO
     Route: 048
     Dates: start: 20070718, end: 20070719
  3. ZYPREXA [Suspect]
     Indication: PSYCHOTIC DISORDER
     Dosage: 5 MG BID PO 5 MG BID PRN PO
     Route: 048
     Dates: start: 20070718, end: 20070719

REACTIONS (6)
  - AGITATION [None]
  - BLOOD CREATINE PHOSPHOKINASE INCREASED [None]
  - BODY TEMPERATURE INCREASED [None]
  - DEPRESSED LEVEL OF CONSCIOUSNESS [None]
  - MUSCULOSKELETAL STIFFNESS [None]
  - ORAL INTAKE REDUCED [None]
